FAERS Safety Report 11309477 (Version 1)
Quarter: 2015Q3

REPORT INFORMATION
  Report Type: Spontaneous
  Country: US (occurrence: US)
  Receive Date: 20150724
  Receipt Date: 20150724
  Transmission Date: 20151125
  Serious: Yes (Hospitalization, Other)
  Sender: FDA-Public Use
  Company Number: US-GLAXOSMITHKLINE-US2015GSK106147

PATIENT
  Weight: 2.15 kg

DRUGS (1)
  1. VALACYCLOVIR [Suspect]
     Active Substance: VALACYCLOVIR HYDROCHLORIDE
     Indication: GENITAL HERPES
     Route: 064

REACTIONS (26)
  - Urine output decreased [Unknown]
  - Hypotonia [Unknown]
  - Aortic valve incompetence [Unknown]
  - Oxygen saturation decreased [Unknown]
  - Anaemia [Unknown]
  - Anuria [Unknown]
  - Cardiac murmur [Unknown]
  - Contusion [Unknown]
  - Breath sounds [Unknown]
  - Vascular resistance pulmonary increased [Unknown]
  - Foetal exposure during pregnancy [Unknown]
  - Haemochromatosis [Unknown]
  - Hypotension [Unknown]
  - Cafe au lait spots [Unknown]
  - Aortic dilatation [Unknown]
  - Salivary gland disorder [Unknown]
  - Hyperbilirubinaemia [Unknown]
  - Generalised oedema [Unknown]
  - Ecchymosis [Unknown]
  - Vessel puncture site haemorrhage [Unknown]
  - Erythroblastosis foetalis [Unknown]
  - Coagulopathy [Unknown]
  - Dilatation ventricular [Unknown]
  - Ascites [Unknown]
  - Breath sounds abnormal [Unknown]
  - Patent ductus arteriosus [Unknown]
